FAERS Safety Report 9403597 (Version 1)
Quarter: 2013Q3

REPORT INFORMATION
  Report Type: Spontaneous
  Country: DE (occurrence: DE)
  Receive Date: 20130717
  Receipt Date: 20130717
  Transmission Date: 20140515
  Serious: Yes (Other)
  Sender: FDA-Public Use
  Company Number: DE-ROCHE-1248377

PATIENT
  Sex: Male
  Weight: 90 kg

DRUGS (11)
  1. ROFERON-A [Suspect]
     Indication: METASTATIC RENAL CELL CARCINOMA
     Route: 065
     Dates: start: 20120921, end: 20130515
  2. ROFERON-A [Suspect]
     Route: 065
     Dates: start: 20110303, end: 20120120
  3. ROFERON-A [Suspect]
     Route: 065
     Dates: start: 20130429
  4. AVASTIN [Suspect]
     Indication: METASTATIC RENAL CELL CARCINOMA
     Route: 042
     Dates: start: 20110303, end: 20120120
  5. AVASTIN [Suspect]
     Route: 042
     Dates: start: 20120921, end: 20130419
  6. ROFERON A [Suspect]
     Indication: METASTATIC RENAL CELL CARCINOMA
     Route: 065
     Dates: start: 20130421
  7. ROFERON A [Suspect]
     Route: 065
     Dates: start: 20130423
  8. ROFERON A [Suspect]
     Route: 065
     Dates: start: 20130425
  9. ROFERON A [Suspect]
     Route: 065
     Dates: start: 20130427
  10. BISOPROLOL [Concomitant]
     Indication: ESSENTIAL HYPERTENSION
     Route: 065
  11. AMLODIPIN [Concomitant]
     Indication: ESSENTIAL HYPERTENSION
     Route: 065

REACTIONS (5)
  - Epilepsy [Recovered/Resolved]
  - Prostate cancer [Unknown]
  - Renal failure [Unknown]
  - Metastases to skin [Unknown]
  - Hypothyroidism [Unknown]
